FAERS Safety Report 6841951-8 (Version None)
Quarter: 2010Q3

REPORT INFORMATION
  Report Type: 
  Country: None (occurrence: None)
  Receive Date: 20100714
  Receipt Date: 20070716
  Transmission Date: 20110219
  Serious: Yes (Other)
  Sender: FDA-Public Use
  Company Number: US-PFIZER INC-2007060334

PATIENT
  Sex: Male
  Weight: 72.727 kg

DRUGS (6)
  1. CHANTIX [Suspect]
     Indication: SMOKING CESSATION THERAPY
     Dosage: EVERYDAY
     Dates: start: 20070401
  2. TRAZODONE HYDROCHLORIDE [Concomitant]
  3. PERCOCET [Concomitant]
  4. PROTONIX [Concomitant]
  5. PRAVASTATIN [Concomitant]
  6. ZANTAC [Concomitant]

REACTIONS (6)
  - ANXIETY [None]
  - ASTHENIA [None]
  - NERVOUSNESS [None]
  - PARANOIA [None]
  - TREMOR [None]
  - UNEVALUABLE EVENT [None]
